APPROVED DRUG PRODUCT: TRELEGY ELLIPTA
Active Ingredient: FLUTICASONE FUROATE; UMECLIDINIUM BROMIDE; VILANTEROL TRIFENATATE
Strength: 0.2MG/INH;EQ 0.0625MG BASE/INH;EQ 0.025MG BASE/INH
Dosage Form/Route: POWDER;INHALATION
Application: N209482 | Product #002
Applicant: GLAXOSMITHKLINE INTELLECTUAL PROPERTY DEVELOPMENT LTD ENGLAND
Approved: Sep 9, 2020 | RLD: Yes | RS: Yes | Type: RX

PATENTS:
Patent 8746242 | Expires: Oct 11, 2030
Patent 7488827 | Expires: Dec 18, 2027
Patent 8534281 | Expires: Mar 8, 2030
Patent 9750726 | Expires: Nov 29, 2030
Patent 12396986 | Expires: Nov 29, 2030
Patent 8534281*PED | Expires: Sep 8, 2030
Patent 8746242*PED | Expires: Apr 11, 2031